FAERS Safety Report 4325055-4 (Version None)
Quarter: 2004Q1

REPORT INFORMATION
  Report Type: 
  Country: None (occurrence: None)
  Receive Date: 20040323
  Receipt Date: 20040311
  Transmission Date: 20041129
  Serious: Yes (Hospitalization)
  Sender: FDA-Public Use
  Company Number: US-JNJFOC-20040302861

PATIENT
  Age: 52 Year
  Sex: Female

DRUGS (3)
  1. DURAGESIC [Suspect]
     Indication: PAIN
     Dosage: SEE IMAGE
     Route: 062
     Dates: start: 20040101
  2. CARBENZAPENE (CARBAMAZEPINE) [Concomitant]
  3. SYNTHROID [Concomitant]

REACTIONS (4)
  - CRYING [None]
  - MEDICATION ERROR [None]
  - PNEUMONIA [None]
  - SPEECH DISORDER [None]
